FAERS Safety Report 8916382 (Version 1)
Quarter: 2012Q4

REPORT INFORMATION
  Report Type: 
  Country: DE (occurrence: DE)
  Receive Date: 20121120
  Receipt Date: 20121120
  Transmission Date: 20130627
  Serious: Yes (Death)
  Sender: FDA-Public Use
  Company Number: DE-WATSON-2012-20008

PATIENT
  Age: 54 Year
  Sex: Male

DRUGS (16)
  1. QUETIAPINE [Suspect]
     Indication: PRODUCT USED FOR UNKNOWN INDICATION
     Dosage: 400 mg, daily
     Route: 065
  2. TAMSULOSIN HYDROCHLORIDE (UNKNOWN) [Suspect]
     Indication: PRODUCT USED FOR UNKNOWN INDICATION
     Dosage: 0.4 mg, daily
     Route: 065
  3. AMITRIPTYLINE [Suspect]
     Indication: PRODUCT USED FOR UNKNOWN INDICATION
     Dosage: 50 mg, daily
     Route: 065
  4. DIAZEPAM (WATSON LABORATORIES) [Suspect]
     Indication: PRODUCT USED FOR UNKNOWN INDICATION
     Dosage: 10 mg, daily
     Route: 065
  5. SODIUM VALPROATE (UNKNOWN) [Suspect]
     Indication: PRODUCT USED FOR UNKNOWN INDICATION
     Dosage: 1500 mg, daily
     Route: 065
  6. OMEPRAZOLE (UNKNOWN) [Suspect]
     Indication: PRODUCT USED FOR UNKNOWN INDICATION
     Dosage: 20 mg, daily
     Route: 065
  7. LACTULOSE [Suspect]
     Indication: PYREXIA
     Dosage: UNK, unknown
     Route: 065
  8. PARACETAMOL [Suspect]
     Indication: PYREXIA
     Dosage: UNK, unknown
     Route: 065
  9. VANCOMYCIN HCL (WATSON LABORATORIES) [Suspect]
     Indication: PYREXIA
     Dosage: UNK, unknown
     Route: 065
  10. FUROSEMIDE (UNKNOWN) [Suspect]
     Indication: PYREXIA
     Dosage: UNK, unknown
     Route: 065
  11. CARBAMAZEPINE [Suspect]
     Indication: EPILEPSY
     Dosage: UNK, unknown
     Route: 065
  12. TRIMETHOPRIM [Suspect]
     Indication: PRODUCT USED FOR UNKNOWN INDICATION
     Dosage: UNK, unknown
     Route: 065
  13. CYCLOBENZAPRINE HYDROCHLORIDE [Suspect]
     Indication: HYPOTONIA
     Dosage: UNK, unknown
     Route: 065
  14. TIAPRIDE [Suspect]
     Indication: PRODUCT USED FOR UNKNOWN INDICATION
     Dosage: UNK, unknown
     Route: 065
  15. SULFADICRAMIDE [Suspect]
     Indication: INFECTION
     Dosage: UNK, unknown
     Route: 065
  16. INFLUENZA VIRUS VACCINE NOS [Suspect]
     Indication: INFLUENZA
     Dosage: UNK, unknown
     Route: 065

REACTIONS (1)
  - Death [Fatal]
